FAERS Safety Report 8337824-4 (Version None)
Quarter: 2012Q2

REPORT INFORMATION
  Report Type: 
  Country: None (occurrence: None)
  Receive Date: 20120504
  Receipt Date: 20120427
  Transmission Date: 20120825
  Serious: Yes (Other)
  Sender: FDA-Public Use
  Company Number: JP-ASTRAZENECA-2012SE27937

PATIENT
  Age: 67 Year
  Sex: Female

DRUGS (1)
  1. CRESTOR [Suspect]
     Dosage: DOSE UNKNOWN
     Route: 048

REACTIONS (1)
  - ELECTROCARDIOGRAM QT PROLONGED [None]
